FAERS Safety Report 9500488 (Version 1)
Quarter: 2013Q3

REPORT INFORMATION
  Report Type: Spontaneous
  Country: US (occurrence: US)
  Receive Date: 20130905
  Receipt Date: 20130905
  Transmission Date: 20140515
  Serious: Yes (Hospitalization)
  Sender: FDA-Public Use
  Company Number: US-BAYER-2013-106613

PATIENT
  Age: 49 Year
  Sex: Female
  Weight: 69.84 kg

DRUGS (4)
  1. YAZ [Suspect]
  2. ZOVIRAX [Concomitant]
     Dosage: 5%
     Route: 061
     Dates: start: 20080915
  3. IBUPROFEN [Concomitant]
     Dosage: 600 MG, UNK
     Route: 048
     Dates: start: 20080915
  4. FERROUS SULFATE [Concomitant]
     Dosage: 325 MG, UNK
     Route: 048
     Dates: start: 20080915

REACTIONS (1)
  - Deep vein thrombosis [None]
